FAERS Safety Report 4885427-6 (Version None)
Quarter: 2005Q4

REPORT INFORMATION
  Report Type: 
  Country: None (occurrence: None)
  Receive Date: 20051220
  Receipt Date: 20050413
  Transmission Date: 20060501
  Serious: Yes (Other)
  Sender: FDA-Public Use
  Company Number: HQWYE127819APR05

PATIENT
  Sex: Male

DRUGS (4)
  1. EFFEXOR XR [Suspect]
     Indication: GENERALISED ANXIETY DISORDER
     Dosage: ^4TH DAY OF 37.5 MG^
  2. EFFEXOR XR [Suspect]
     Indication: MAJOR DEPRESSION
     Dosage: ^4TH DAY OF 37.5 MG^
  3. EFFEXOR XR [Suspect]
     Indication: SOCIAL PHOBIA
     Dosage: ^4TH DAY OF 37.5 MG^
  4. VIAGRA [Concomitant]

REACTIONS (1)
  - GENITAL HAEMORRHAGE [None]
